FAERS Safety Report 9106544 (Version 2)
Quarter: 2013Q1

REPORT INFORMATION
  Report Type: Spontaneous
  Country: NL (occurrence: NL)
  Receive Date: 20130222
  Receipt Date: 20130312
  Transmission Date: 20140127
  Serious: Yes (Other)
  Sender: FDA-Public Use
  Company Number: NL-AMGEN-NLDSP2013012233

PATIENT
  Age: 69 Year
  Sex: Male

DRUGS (1)
  1. ENBREL [Suspect]
     Indication: PSORIATIC ARTHROPATHY
     Dosage: 50 MG, WEEKLY
     Dates: start: 2009, end: 201210

REACTIONS (5)
  - Oedema peripheral [Recovering/Resolving]
  - Arthritis [Recovering/Resolving]
  - Urinary tract infection [Recovering/Resolving]
  - Prostate infection [Recovering/Resolving]
  - Localised infection [Recovering/Resolving]
